FAERS Safety Report 10529884 (Version 1)
Quarter: 2014Q4

REPORT INFORMATION
  Report Type: Spontaneous
  Country: US (occurrence: None)
  Receive Date: 20141020
  Receipt Date: 20141020
  Transmission Date: 20150528
  Serious: No
  Sender: FDA-Public Use
  Company Number: None

PATIENT
  Age: 77 Year
  Sex: Female
  Weight: 70.76 kg

DRUGS (11)
  1. ASPIRIN 81 DOSE  1 DAY [Concomitant]
  2. FISH OIL [Concomitant]
     Active Substance: FISH OIL
  3. CARVEDILOL. [Suspect]
     Active Substance: CARVEDILOL
  4. VIT D3 1,000 [Concomitant]
  5. ACIDOPHILUS  1 DAY [Concomitant]
  6. AMLODIPINE 5 MG (NORVASC) [Concomitant]
  7. CALCIUM  500 + D [Concomitant]
     Active Substance: CALCIUM\VITAMIN D
  8. BYSTOLIC [Suspect]
     Active Substance: NEBIVOLOL HYDROCHLORIDE
     Indication: CARDIAC DISORDER
     Route: 048
     Dates: start: 20140814, end: 20140903
  9. DITROPAN XL [Suspect]
     Active Substance: OXYBUTYNIN CHLORIDE
     Indication: HYPERTONIC BLADDER
     Dosage: 2 AT BEDTIME
  10. METOPROLOL XL [Suspect]
     Active Substance: METOPROLOL
     Dates: start: 20140814, end: 20140903
  11. XANAX 1 MG [Concomitant]

REACTIONS (1)
  - Alopecia [None]

NARRATIVE: CASE EVENT DATE: 20140327
